FAERS Safety Report 11596536 (Version 2)
Quarter: 2015Q4

REPORT INFORMATION
  Report Type: Spontaneous
  Country: US (occurrence: US)
  Receive Date: 20151006
  Receipt Date: 20151026
  Transmission Date: 20160304
  Serious: No
  Sender: FDA-Public Use
  Company Number: US-PFIZER INC-2015308938

PATIENT
  Age: 80 Year
  Sex: Female

DRUGS (8)
  1. METOPROLOL [Concomitant]
     Active Substance: METOPROLOL
     Dosage: UNK
  2. ZETIA [Concomitant]
     Active Substance: EZETIMIBE
     Dosage: UNK
  3. ATORVASTATIN CALCIUM. [Suspect]
     Active Substance: ATORVASTATIN CALCIUM
     Dosage: 80 MG, 1X/DAY
  4. PRAVASTATIN [Suspect]
     Active Substance: PRAVASTATIN\PRAVASTATIN SODIUM
     Dosage: 40 MG, 1X/DAY
  5. FOLIC ACID. [Concomitant]
     Active Substance: FOLIC ACID
     Dosage: UNK
  6. CALCIUM [Concomitant]
     Active Substance: CALCIUM
     Dosage: UNK
  7. CRESTOR [Suspect]
     Active Substance: ROSUVASTATIN CALCIUM
     Dosage: UNK, 1X/DAY
  8. ASPIRIN. [Concomitant]
     Active Substance: ASPIRIN
     Dosage: 80 MG, UNK

REACTIONS (3)
  - Dry skin [Not Recovered/Not Resolved]
  - Muscle spasms [Not Recovered/Not Resolved]
  - Polyuria [Not Recovered/Not Resolved]
